FAERS Safety Report 17894169 (Version 4)
Quarter: 2020Q3

REPORT INFORMATION
  Report Type: Spontaneous
  Country: US (occurrence: US)
  Receive Date: 20200615
  Receipt Date: 20200811
  Transmission Date: 20201103
  Serious: No
  Sender: FDA-Public Use
  Company Number: US-AMGEN-USASP2020089993

PATIENT
  Age: 44 Year
  Sex: Male

DRUGS (6)
  1. NPLATE [Suspect]
     Active Substance: ROMIPLOSTIM
     Dosage: 186 MICROGRAM, QWK
     Route: 058
  2. ODEFSEY [Concomitant]
     Active Substance: EMTRICITABINE\RILPIVIRINE HYDROCHLORIDE\TENOFOVIR ALAFENAMIDE FUMARATE
     Indication: HIV INFECTION
  3. NPLATE [Suspect]
     Active Substance: ROMIPLOSTIM
     Dosage: 186 MICROGRAM, QWK
     Route: 058
     Dates: start: 20200706
  4. NEUPOGEN [Suspect]
     Active Substance: FILGRASTIM
     Indication: NEUTROPENIA
     Dosage: UNK
     Route: 065
  5. NPLATE [Suspect]
     Active Substance: ROMIPLOSTIM
     Indication: IMMUNE THROMBOCYTOPENIA
     Dosage: 93 MICROGRAM, QWK
     Route: 058
     Dates: start: 20191224
  6. NPLATE [Suspect]
     Active Substance: ROMIPLOSTIM
     Dosage: 280 MICROGRAM, QWK
     Route: 058
     Dates: start: 20200514, end: 20200514

REACTIONS (2)
  - Antibody test positive [Unknown]
  - Platelet count decreased [Unknown]

NARRATIVE: CASE EVENT DATE: 2020
